FAERS Safety Report 8966169 (Version 3)
Quarter: 2013Q1

REPORT INFORMATION
  Report Type: Spontaneous
  Country: US (occurrence: US)
  Receive Date: 20121214
  Receipt Date: 20130117
  Transmission Date: 20140127
  Serious: Yes (Hospitalization, Other)
  Sender: FDA-Public Use
  Company Number: US-ALEXION-A201202370

PATIENT
  Age: 77 None
  Sex: Female

DRUGS (7)
  1. SOLIRIS 300MG [Suspect]
     Indication: PAROXYSMAL NOCTURNAL HAEMOGLOBINURIA
     Dosage: 900 MG, Q2W
     Route: 042
  2. VANCOMYCIN [Suspect]
     Indication: BACTERAEMIA
     Dosage: UNK
     Route: 042
     Dates: end: 20130114
  3. PRADAXA [Concomitant]
     Indication: ATRIAL FIBRILLATION
     Dosage: UNK
  4. INSULIN [Concomitant]
     Indication: DIABETES MELLITUS
     Dosage: UNK
  5. CARDIZEM [Concomitant]
     Indication: HYPERTENSION
     Dosage: UNK
  6. ACEBUTOLOL [Concomitant]
     Indication: HYPERTENSION
     Dosage: UNK
  7. METOPROLOL [Concomitant]
     Dosage: UNK

REACTIONS (8)
  - Staphylococcal bacteraemia [Unknown]
  - Bradycardia [Not Recovered/Not Resolved]
  - Fall [Unknown]
  - Lumbar vertebral fracture [Not Recovered/Not Resolved]
  - Confusional state [Not Recovered/Not Resolved]
  - Somnolence [Unknown]
  - Haemoglobin decreased [Recovering/Resolving]
  - Nausea [Unknown]
